FAERS Safety Report 13745300 (Version 1)
Quarter: 2017Q3

REPORT INFORMATION
  Report Type: Spontaneous
  Country: CN (occurrence: CN)
  Receive Date: 20170712
  Receipt Date: 20170712
  Transmission Date: 20171127
  Serious: Yes (Other)
  Sender: FDA-Public Use
  Company Number: CN-BAYER-2017-128753

PATIENT

DRUGS (1)
  1. STIVARGA [Suspect]
     Active Substance: REGORAFENIB
     Indication: COLORECTAL CANCER METASTATIC
     Dosage: 160 MG, UNK
     Route: 048
     Dates: start: 20120830, end: 20150409

REACTIONS (2)
  - Metastases to lymph nodes [None]
  - Colorectal cancer [None]

NARRATIVE: CASE EVENT DATE: 20150409
